FAERS Safety Report 6657287-4 (Version None)
Quarter: 2010Q1

REPORT INFORMATION
  Report Type: 
  Country: None (occurrence: None)
  Receive Date: 20100319
  Receipt Date: 20091019
  Transmission Date: 20100710
  Serious: Yes (Other)
  Sender: FDA-Public Use
  Company Number: 2009SP029995

PATIENT
  Age: 45 Year
  Sex: Male

DRUGS (6)
  1. PEG-INTRON [Suspect]
     Indication: HEPATITIS C
     Dosage: 180 MCG; QW; : 120 MCG; QW;
     Dates: start: 20031125, end: 20050101
  2. PEG-INTRON [Suspect]
     Indication: HEPATITIS C
     Dosage: 180 MCG; QW; : 120 MCG; QW;
     Dates: start: 20031011
  3. RIBAVIRIN [Suspect]
     Indication: HEPATITIS C
     Dosage: 1000 MG; QD; PO
     Route: 048
     Dates: start: 20031011, end: 20050801
  4. NICODERM [Concomitant]
  5. TRIZIVIR [Concomitant]
  6. SUSTIVA [Concomitant]

REACTIONS (10)
  - COGNITIVE DISORDER [None]
  - DECREASED ACTIVITY [None]
  - DISEASE RECURRENCE [None]
  - FATIGUE [None]
  - HYPERTRIGLYCERIDAEMIA [None]
  - HYPOTHYROIDISM [None]
  - INFLUENZA LIKE ILLNESS [None]
  - LEUKOPENIA [None]
  - ORAL CANDIDIASIS [None]
  - WEIGHT DECREASED [None]
